FAERS Safety Report 6399550-0 (Version None)
Quarter: 2009Q4

REPORT INFORMATION
  Report Type: 
  Country: None (occurrence: None)
  Receive Date: 20091014
  Receipt Date: 20091005
  Transmission Date: 20100525
  Serious: Yes (Other)
  Sender: FDA-Public Use
  Company Number: GB-ASTRAZENECA-2009SE17887

PATIENT
  Age: 31 Year
  Sex: Male

DRUGS (5)
  1. QUETIAPINE [Suspect]
     Indication: ALCOHOLIC PSYCHOSIS
     Dosage: 150MG/200MG ON ALTERATE DAYS
     Route: 048
  2. DIAZEPAM [Concomitant]
     Indication: ANXIETY
     Route: 065
  3. FLUOXETINE [Concomitant]
     Indication: DEPRESSION
     Route: 048
  4. LANSOPRAZOLE [Concomitant]
     Indication: ABDOMINAL PAIN
     Route: 048
  5. ZOPICLONE [Concomitant]
     Indication: INSOMNIA
     Route: 065

REACTIONS (2)
  - ATRIOVENTRICULAR BLOCK COMPLETE [None]
  - OVERDOSE [None]
